FAERS Safety Report 5512500-1 (Version None)
Quarter: 2007Q4

REPORT INFORMATION
  Report Type: 
  Country: None (occurrence: None)
  Receive Date: 20071112
  Receipt Date: 20070523
  Transmission Date: 20080405
  Serious: No
  Sender: FDA-Public Use
  Company Number: A0652668A

PATIENT
  Age: 40 Year
  Sex: Female

DRUGS (5)
  1. AVANDAMET [Suspect]
     Route: 048
     Dates: start: 20050101
  2. ASPIRIN [Concomitant]
  3. ALTACE [Concomitant]
  4. VYTORIN [Concomitant]
  5. UNKNOWN MEDICATION [Concomitant]

REACTIONS (1)
  - OEDEMA PERIPHERAL [None]
